FAERS Safety Report 5299283-8 (Version None)
Quarter: 2007Q2

REPORT INFORMATION
  Report Type: 
  Country: None (occurrence: None)
  Receive Date: 20070411
  Receipt Date: 20070411
  Transmission Date: 20071010
  Serious: Yes (Hospitalization)
  Sender: FDA-Public Use
  Company Number: None

PATIENT
  Sex: Male

DRUGS (2)
  1. GLEEVEC [Suspect]
     Indication: PROSTATE CANCER
     Dosage: 300MG QD PO
     Route: 048
     Dates: start: 20070130
  2. SORAFENIB [Suspect]
     Indication: PROSTATE CANCER
     Dosage: 400MG QD PO
     Route: 048
     Dates: start: 20070130

REACTIONS (2)
  - CERVICAL CORD COMPRESSION [None]
  - CERVICAL VERTEBRAL FRACTURE [None]
